FAERS Safety Report 17655799 (Version 1)
Quarter: 2020Q2

REPORT INFORMATION
  Report Type: Spontaneous
  Country: US (occurrence: US)
  Receive Date: 20200410
  Receipt Date: 20200410
  Transmission Date: 20200713
  Serious: Yes (Life-Threatening, Hospitalization)
  Sender: FDA-Public Use
  Company Number: US-NOVOPROD-722399

PATIENT
  Age: 72 Year
  Sex: Male

DRUGS (1)
  1. NOVOLOG [Suspect]
     Active Substance: INSULIN ASPART
     Indication: TYPE 2 DIABETES MELLITUS
     Dosage: 6 IU, TID( 6 UNITS 3X A DAY, SLIDING SCALE)
     Route: 058
     Dates: start: 2005

REACTIONS (5)
  - Blood glucose decreased [Recovered/Resolved]
  - Liver injury [Unknown]
  - General physical health deterioration [Unknown]
  - Blood glucose increased [Not Recovered/Not Resolved]
  - Loss of consciousness [Unknown]

NARRATIVE: CASE EVENT DATE: 2005
